FAERS Safety Report 4528712-X (Version None)
Quarter: 2005Q1

REPORT INFORMATION
  Report Type: 
  Country: None (occurrence: None)
  Receive Date: 20041202
  Receipt Date: 20040914
  Transmission Date: 20050727
  Serious: No
  Sender: FDA-Public Use
  Company Number: 200419128BWH

PATIENT
  Age: 60 Year
  Sex: Male
  Weight: 102.0593 kg

DRUGS (13)
  1. LEVITRA [Suspect]
     Indication: ERECTILE DYSFUNCTION
     Dosage: 10 MG, TOTAL DAILY, ORAL; SEE IMAGE
     Route: 048
     Dates: start: 20040704
  2. LEVITRA [Suspect]
     Indication: ERECTILE DYSFUNCTION
     Dosage: 10 MG, TOTAL DAILY, ORAL; SEE IMAGE
     Route: 048
     Dates: start: 20040711
  3. VIAGRA [Concomitant]
  4. GLUCOPHAGE [Concomitant]
  5. GLYBURIDE [Concomitant]
  6. DIOVAN [Concomitant]
  7. COREG [Concomitant]
  8. LASIX [Concomitant]
  9. INSPRA [Concomitant]
  10. MULTIVITAMIN WITH FOLIC ACID [Concomitant]
  11. QUININE [Concomitant]
  12. ASPIRIN [Concomitant]
  13. PRAVACHOL [Concomitant]

REACTIONS (1)
  - DRUG INEFFECTIVE [None]
